FAERS Safety Report 8337633-6 (Version None)
Quarter: 2012Q2

REPORT INFORMATION
  Report Type: 
  Country: None (occurrence: None)
  Receive Date: 20120504
  Receipt Date: 20120419
  Transmission Date: 20120825
  Serious: Yes (Life-Threatening, Hospitalization)
  Sender: FDA-Public Use
  Company Number: BR-ROCHE-696641

PATIENT
  Sex: Male
  Weight: 82 kg

DRUGS (82)
  1. ROFERON-A [Suspect]
     Indication: RENAL CELL CARCINOMA
     Route: 058
  2. PAROXETINE [Concomitant]
     Dates: start: 20100509
  3. ONDANSETRON [Concomitant]
     Dates: start: 20100501, end: 20100504
  4. DOMPERIDONE [Concomitant]
     Indication: PROPHYLAXIS OF NAUSEA AND VOMITING
     Dates: start: 20100324, end: 20100408
  5. LEVOTHYROXINE SODIUM [Concomitant]
     Dates: start: 20100427, end: 20100427
  6. LEVOTHYROXINE SODIUM [Concomitant]
     Dates: start: 20100504
  7. HEPARIN [Concomitant]
     Indication: THROMBOSIS PROPHYLAXIS
     Dates: start: 20100412, end: 20100412
  8. DIPYRONE TAB [Concomitant]
     Indication: PROPHYLAXIS
     Dates: start: 20100403
  9. DIPYRONE TAB [Concomitant]
     Dates: start: 20100501, end: 20100502
  10. DIPYRONE TAB [Concomitant]
     Dates: start: 20100504, end: 20100504
  11. MINERAL OIL [Concomitant]
     Indication: PROPHYLAXIS
     Dates: start: 20100501, end: 20100503
  12. GLYBURIDE [Concomitant]
     Dates: start: 20100405, end: 20100405
  13. GLYBURIDE [Concomitant]
     Dates: start: 20100510
  14. ONDANSETRON [Concomitant]
     Dates: start: 20100407, end: 20100408
  15. LEVOTHYROXINE SODIUM [Concomitant]
     Dates: start: 20100414, end: 20100424
  16. METOCLOPRAMIDE [Concomitant]
     Dates: start: 20100428, end: 20100428
  17. BROMOPRIDE [Concomitant]
     Indication: PROPHYLAXIS
     Dates: start: 20100430, end: 20100506
  18. IPRATROPIUM BROMIDE [Concomitant]
     Dates: start: 20100501, end: 20100509
  19. HALOPERIDOL [Concomitant]
     Dates: start: 20100506, end: 20100509
  20. DOMPERIDONE [Concomitant]
     Indication: PROPHYLAXIS
     Dates: start: 20100506, end: 20100509
  21. GLYBURIDE [Concomitant]
     Indication: DIABETES MELLITUS
     Dates: start: 20100128, end: 20100403
  22. PAROXETINE [Concomitant]
     Indication: DEPRESSION
     Dates: start: 20091230, end: 20100405
  23. PAROXETINE [Concomitant]
     Dates: start: 20100414, end: 20100424
  24. OMEPRAZOLE [Concomitant]
     Indication: DYSPEPSIA
     Dates: start: 20100411, end: 20100412
  25. DRAMIN [Concomitant]
     Dates: start: 20100414, end: 20100424
  26. CLORPROMAZINA [Concomitant]
     Indication: PROPHYLAXIS
     Dates: start: 20100428, end: 20100429
  27. METOCLOPRAMIDE [Concomitant]
     Dates: start: 20100202, end: 20100403
  28. METOCLOPRAMIDE [Concomitant]
     Dates: start: 20100414
  29. DIPYRONE TAB [Concomitant]
     Dates: start: 20100425, end: 20100429
  30. HALOPERIDOL [Concomitant]
     Indication: PROPHYLAXIS
     Dates: start: 20100503, end: 20100503
  31. GLYBURIDE [Concomitant]
     Dates: start: 20100414, end: 20100424
  32. GLYBURIDE [Concomitant]
     Dates: start: 20100427, end: 20100427
  33. DORFLEX [Concomitant]
     Indication: PAIN PROPHYLAXIS
     Dates: start: 20100103, end: 20100403
  34. PAROXETINE [Concomitant]
     Dates: start: 20100504, end: 20100507
  35. ONDANSETRON [Concomitant]
     Dates: start: 20100414, end: 20100424
  36. DOMPERIDONE [Concomitant]
     Dates: start: 20100414, end: 20100424
  37. LEVOTHYROXINE SODIUM [Concomitant]
     Dates: start: 20100429, end: 20100429
  38. LEVOTHYROXINE SODIUM [Concomitant]
     Dates: start: 20100502, end: 20100502
  39. BROMAZEPAM [Concomitant]
     Indication: PROPHYLAXIS
     Dates: start: 20100412, end: 20100412
  40. METOCLOPRAMIDE [Concomitant]
     Dates: start: 20100502, end: 20100502
  41. METOCLOPRAMIDE [Concomitant]
     Dates: start: 20100504, end: 20100505
  42. DIPYRONE TAB [Concomitant]
     Dates: start: 20100508, end: 20100508
  43. CLOBUTINOL [Concomitant]
     Indication: PAIN PROPHYLAXIS
     Dates: start: 20100428, end: 20100428
  44. DIMETICONE [Concomitant]
     Indication: PROPHYLAXIS
     Dates: start: 20100501, end: 20100508
  45. DEXPANTHENOL [Concomitant]
     Indication: PROPHYLAXIS
     Dates: start: 20100506, end: 20100509
  46. ROFERON-A [Suspect]
     Dosage: DOSE REDUCED  DOSE: 6MU SINCE CYCLE 4
     Route: 042
  47. PAROXETINE [Concomitant]
     Dates: start: 20100427, end: 20100429
  48. ONDANSETRON [Concomitant]
     Indication: PROPHYLAXIS OF NAUSEA AND VOMITING
     Dates: start: 20100310, end: 20100403
  49. DOMPERIDONE [Concomitant]
     Dates: start: 20100506, end: 20100509
  50. BETAHISTINE [Concomitant]
     Indication: DIZZINESS
     Dates: start: 20100324, end: 20100406
  51. LEVOTHYROXINE SODIUM [Concomitant]
     Indication: HYPOTHYROIDISM
     Dates: start: 20080101, end: 20100404
  52. LEVOTHYROXINE SODIUM [Concomitant]
     Dates: start: 20100407, end: 20100408
  53. BROMAZEPAM [Concomitant]
     Dates: start: 20100427, end: 20100428
  54. DRAMIN [Concomitant]
     Indication: PROPHYLAXIS OF NAUSEA AND VOMITING
     Dates: start: 20100202, end: 20100403
  55. MAGNESIUM OXIDE [Concomitant]
     Indication: PROPHYLAXIS
     Dates: start: 20100428, end: 20100428
  56. HEPARIN [Concomitant]
     Dates: start: 20100425, end: 20100425
  57. METOCLOPRAMIDE [Concomitant]
     Dates: start: 20100410, end: 20100412
  58. GLICERINA [Concomitant]
     Indication: PROPHYLAXIS
     Dates: start: 20100502, end: 20100504
  59. SODIUM CHLORIDE [Concomitant]
     Dates: start: 20100425, end: 20100428
  60. TRIGLYCERIDES [Concomitant]
     Indication: PROPHYLAXIS
     Dates: start: 20100503, end: 20100509
  61. AVASTIN [Suspect]
     Indication: RENAL CELL CARCINOMA
     Dosage: FREQUENCY REPORTED EVERY OTHER WEEK
     Route: 042
     Dates: start: 20091216, end: 20100324
  62. GLYBURIDE [Concomitant]
     Dates: start: 20100502, end: 20100503
  63. DORFLEX [Concomitant]
     Dates: start: 20100414, end: 20100424
  64. PAROXETINE [Concomitant]
     Dates: start: 20100502, end: 20100502
  65. BETAHISTINE [Concomitant]
     Dates: start: 20100510
  66. BROMAZEPAM [Concomitant]
     Dates: start: 20100414
  67. OMEPRAZOLE [Concomitant]
     Dates: start: 20100430, end: 20100509
  68. ATROVENT [Concomitant]
     Indication: PROPHYLAXIS
     Dates: start: 20100428, end: 20100428
  69. TRAMADOL HCL [Concomitant]
     Indication: PROPHYLAXIS
     Dates: start: 20100425, end: 20100425
  70. HEPARIN [Concomitant]
     Dates: start: 20100430, end: 20100509
  71. IPRATROPIUM BROMIDE [Concomitant]
     Dates: start: 20100428, end: 20100428
  72. OMEPRAZOLE [Concomitant]
     Dates: start: 20100425, end: 20100425
  73. METOCLOPRAMIDE [Concomitant]
     Dates: start: 20100403, end: 20100406
  74. DIPYRONE TAB [Concomitant]
     Dates: start: 20100410, end: 20100413
  75. LORAZEPAM [Concomitant]
     Indication: PROPHYLAXIS
     Dates: start: 20100501, end: 20100502
  76. GLYBURIDE [Concomitant]
     Dates: start: 20100407, end: 20100408
  77. GLYBURIDE [Concomitant]
     Dates: start: 20100429, end: 20100429
  78. BETAHISTINE [Concomitant]
     Dates: start: 20100414, end: 20100424
  79. METOCLOPRAMIDE [Concomitant]
     Dates: start: 20100422, end: 20100422
  80. IPRATROPIUM BROMIDE [Concomitant]
     Indication: PROPHYLAXIS
     Dates: start: 20100501, end: 20100509
  81. FENOTEROL [Concomitant]
     Indication: PROPHYLAXIS
     Dates: start: 20100501, end: 20100509
  82. SODIUM CHLORIDE [Concomitant]
     Indication: PROPHYLAXIS
     Dates: start: 20100409, end: 20100412

REACTIONS (2)
  - GASTROINTESTINAL PERFORATION [None]
  - INFECTIOUS PERITONITIS [None]
